FAERS Safety Report 21584904 (Version 1)
Quarter: 2022Q4

REPORT INFORMATION
  Report Type: Spontaneous
  Country: US (occurrence: US)
  Receive Date: 20221111
  Receipt Date: 20221111
  Transmission Date: 20230113
  Serious: Yes (Hospitalization, Other)
  Sender: FDA-Public Use
  Company Number: US-GLAXOSMITHKLINE-US2022162261

PATIENT

DRUGS (4)
  1. ANORO ELLIPTA [Suspect]
     Active Substance: UMECLIDINIUM BROMIDE\VILANTEROL TRIFENATATE
     Indication: Chronic obstructive pulmonary disease
     Dosage: UNK UNK, QD
  2. ZANTAC [Concomitant]
     Active Substance: RANITIDINE HYDROCHLORIDE
     Indication: Product used for unknown indication
     Dosage: UNK
  3. CODEINE [Concomitant]
     Active Substance: CODEINE
     Indication: Migraine
     Dosage: UNK
  4. CODEINE [Concomitant]
     Active Substance: CODEINE
     Indication: Arthritis

REACTIONS (6)
  - Cardiac disorder [Unknown]
  - Loss of consciousness [Unknown]
  - Coronary artery occlusion [Unknown]
  - Infection [Unknown]
  - Lung disorder [Unknown]
  - Vascular graft [Unknown]

NARRATIVE: CASE EVENT DATE: 20180101
